FAERS Safety Report 22642688 (Version 4)
Quarter: 2024Q4

REPORT INFORMATION
  Report Type: Spontaneous
  Country: PT (occurrence: PT)
  Receive Date: 20230627
  Receipt Date: 20241004
  Transmission Date: 20250115
  Serious: Yes (Hospitalization, Other)
  Sender: CELLTRION
  Company Number: PT-CELLTRION INC.-2023PT012581

PATIENT

DRUGS (3)
  1. RITUXIMAB [Suspect]
     Active Substance: RITUXIMAB
     Indication: Non-Hodgkin^s lymphoma
     Dosage: UNK
     Route: 065
  2. BENDAMUSTINE HYDROCHLORIDE [Suspect]
     Active Substance: BENDAMUSTINE HYDROCHLORIDE
     Indication: Non-Hodgkin^s lymphoma
     Dosage: UNK
     Route: 065
  3. COVID-19 VACCINE [Concomitant]
     Indication: Immunisation
     Dosage: 1ST AND 2ND VACCINE DOSES

REACTIONS (2)
  - Humoral immune defect [Recovered/Resolved]
  - COVID-19 [Recovered/Resolved]
